FAERS Safety Report 4590147-1 (Version None)
Quarter: 2005Q1

REPORT INFORMATION
  Report Type: 
  Country: None (occurrence: None)
  Receive Date: 20050217
  Receipt Date: 20050203
  Transmission Date: 20050727
  Serious: Yes (Other)
  Sender: FDA-Public Use
  Company Number: 05-000099

PATIENT
  Age: 42 Year
  Sex: Female
  Weight: 82.5 kg

DRUGS (9)
  1. FEMRING [Suspect]
     Indication: HORMONE REPLACEMENT THERAPY
     Dosage: 0.05 MG, QD, VAGINAL
     Route: 067
     Dates: start: 20050202, end: 20050202
  2. KLONOPIN [Concomitant]
  3. MULTIVITAMINS (ASCORBIC ACID, ERGOCALCIFEROL, FOLIC ACID, NICOTINAMIDE [Concomitant]
  4. OMEGA 3 (FISH OIL) [Concomitant]
  5. VITAMIN C (ASCORBIC ACID) [Concomitant]
  6. VITAMIN E (VEGETABLE OIL) [Concomitant]
  7. ZANTAC [Concomitant]
  8. SURFAK (DOCUSATE CALCIUM) [Concomitant]
  9. METAMUCIL (GLUCOSE MONOHYDRATE, ISPAGHULA HUSK) [Concomitant]

REACTIONS (12)
  - BACK PAIN [None]
  - BLOOD PRESSURE INCREASED [None]
  - CHEST PAIN [None]
  - CONDITION AGGRAVATED [None]
  - DYSPEPSIA [None]
  - FATIGUE [None]
  - GASTROOESOPHAGEAL REFLUX DISEASE [None]
  - GENITAL HAEMORRHAGE [None]
  - HEADACHE [None]
  - HOT FLUSH [None]
  - NAUSEA [None]
  - VULVOVAGINAL DISCOMFORT [None]
